FAERS Safety Report 4369265-9 (Version None)
Quarter: 2004Q2

REPORT INFORMATION
  Report Type: 
  Country: None (occurrence: None)
  Receive Date: 20040603
  Receipt Date: 20040317
  Transmission Date: 20050107
  Serious: No
  Sender: FDA-Public Use
  Company Number: US-GLAXOSMITHKLINE-A0503201A

PATIENT
  Age: 72 Year
  Sex: Female

DRUGS (1)
  1. AUGMENTIN [Suspect]
     Indication: LOWER RESPIRATORY TRACT INFECTION
     Dosage: 2TAB TWICE PER DAY
     Route: 048
     Dates: start: 20040302, end: 20040316

REACTIONS (2)
  - DIARRHOEA [None]
  - INSOMNIA [None]
